FAERS Safety Report 17462853 (Version 1)
Quarter: 2020Q1

REPORT INFORMATION
  Report Type: Spontaneous
  Country: US (occurrence: US)
  Receive Date: 20200226
  Receipt Date: 20200226
  Transmission Date: 20200409
  Serious: Yes (Other)
  Sender: FDA-Public Use
  Company Number: US-ASTRAZENECA-2020SE28078

PATIENT
  Age: 53 Year
  Sex: Female
  Weight: 75.3 kg

DRUGS (11)
  1. HCTZ [Concomitant]
     Active Substance: HYDROCHLOROTHIAZIDE
     Indication: HYPERTENSION
  2. HUMIRA [Interacting]
     Active Substance: ADALIMUMAB
     Indication: ANKYLOSING SPONDYLITIS
     Dosage: 40 MG/0.8 ML
     Route: 058
     Dates: start: 2015, end: 201707
  3. METHOTREXATE. [Interacting]
     Active Substance: METHOTREXATE
     Dosage: BIWEEKLY
     Route: 065
     Dates: end: 2018
  4. CARBAMAZEPINE. [Concomitant]
     Active Substance: CARBAMAZEPINE
     Indication: EPILEPSY
  5. PNEUMONIA SHOT [Concomitant]
     Active Substance: PNEUMOCOCCAL VACCINE POLYVALENT
     Indication: HYPERTENSION
  6. HUMIRA [Interacting]
     Active Substance: ADALIMUMAB
     Indication: ANKYLOSING SPONDYLITIS
     Dosage: 40 MG/0.8 ML
     Route: 058
     Dates: start: 201803
  7. PRILOSEC [Suspect]
     Active Substance: OMEPRAZOLE MAGNESIUM
     Route: 048
  8. HUMIRA [Interacting]
     Active Substance: ADALIMUMAB
     Indication: ANKYLOSING SPONDYLITIS
     Dosage: 40 MG/0.8 ML
     Route: 058
     Dates: start: 201710, end: 201712
  9. HUMIRA [Interacting]
     Active Substance: ADALIMUMAB
     Indication: ANKYLOSING SPONDYLITIS
     Dosage: 40 MG/0.8 ML
     Route: 058
     Dates: start: 201801, end: 201803
  10. METHOTREXATE. [Interacting]
     Active Substance: METHOTREXATE
     Dosage: WEEKLY
     Route: 065
     Dates: start: 2018
  11. LISINOPRIL. [Interacting]
     Active Substance: LISINOPRIL
     Indication: HYPERTENSION
     Route: 048

REACTIONS (3)
  - Fall [Unknown]
  - Surgical failure [Unknown]
  - Iritis [Recovered/Resolved]
